FAERS Safety Report 9927744 (Version 1)
Quarter: 2014Q1

REPORT INFORMATION
  Report Type: Spontaneous
  Country: US (occurrence: US)
  Receive Date: 20140227
  Receipt Date: 20140227
  Transmission Date: 20141002
  Serious: Yes (Hospitalization)
  Sender: FDA-Public Use
  Company Number: US-ABBVIE-14P-163-1205356-00

PATIENT
  Age: 65 Year
  Sex: Male
  Weight: 107.14 kg

DRUGS (11)
  1. ANDROGEL [Suspect]
     Indication: BLOOD TESTOSTERONE DECREASED
     Dosage: 2-20.25 MG PUMPS DAILY
     Route: 061
     Dates: start: 201301, end: 2013
  2. ANDROGEL [Suspect]
     Dosage: 4-20.25 MG PUMPS DAILY
     Route: 061
     Dates: start: 2013, end: 20140213
  3. AMLODIPINE [Concomitant]
     Indication: HYPERTENSION
     Dosage: AT HOUR OF SLEEP
     Route: 048
     Dates: start: 201311
  4. CARVEDILOL [Concomitant]
     Indication: HYPERTENSION
     Route: 048
     Dates: start: 201311, end: 201402
  5. CARVEDILOL [Concomitant]
     Route: 048
     Dates: start: 201402
  6. CRESTOR [Concomitant]
     Indication: BLOOD CHOLESTEROL INCREASED
     Dosage: AT HOUR OF SLEEP
     Route: 048
  7. ESCITALOPRAM [Concomitant]
     Indication: PRODUCT USED FOR UNKNOWN INDICATION
     Route: 048
  8. LISINOPRIL/HYDROCHLOROTHIAZIDE [Concomitant]
     Indication: HYPERTENSION
     Dosage: 20.5MG/12.5 MG
     Route: 048
  9. NETOMIN HCL [Concomitant]
     Indication: PRODUCT USED FOR UNKNOWN INDICATION
     Route: 048
  10. TAMSULOSIN HCL [Concomitant]
     Indication: PRODUCT USED FOR UNKNOWN INDICATION
  11. ASPIRIN [Concomitant]
     Indication: PRODUCT USED FOR UNKNOWN INDICATION
     Route: 048

REACTIONS (5)
  - Eyelid ptosis [Recovered/Resolved]
  - Blood pressure increased [Recovering/Resolving]
  - Transient ischaemic attack [Recovered/Resolved]
  - VIIth nerve paralysis [Not Recovered/Not Resolved]
  - Cerebral thrombosis [Recovering/Resolving]
